FAERS Safety Report 17520683 (Version 1)
Quarter: 2020Q1

REPORT INFORMATION
  Report Type: Spontaneous
  Country: US (occurrence: US)
  Receive Date: 20200310
  Receipt Date: 20200310
  Transmission Date: 20200409
  Serious: No
  Sender: FDA-Public Use
  Company Number: US-PFIZER INC-2018222459

PATIENT
  Age: 75 Year
  Sex: Female

DRUGS (8)
  1. ALPRAZOLAM XR [Concomitant]
     Active Substance: ALPRAZOLAM
     Indication: AGORAPHOBIA
  2. ALPRAZOLAM XR [Concomitant]
     Active Substance: ALPRAZOLAM
     Indication: POST-TRAUMATIC STRESS DISORDER
     Dosage: 0.5 MG, 1X/DAY IN THE MORNING
  3. ALPRAZOLAM. [Suspect]
     Active Substance: ALPRAZOLAM
     Indication: POST-TRAUMATIC STRESS DISORDER
     Dosage: 0.5 MG, 1X/DAY (2 0.25 MG TABLETS AT NIGHT)
  4. ALPRAZOLAM. [Suspect]
     Active Substance: ALPRAZOLAM
     Indication: PANIC ATTACK
  5. ALPRAZOLAM XR [Concomitant]
     Active Substance: ALPRAZOLAM
     Indication: PANIC ATTACK
  6. ALPRAZOLAM. [Suspect]
     Active Substance: ALPRAZOLAM
     Indication: ANXIETY
  7. ALPRAZOLAM XR [Concomitant]
     Active Substance: ALPRAZOLAM
     Indication: ANXIETY
  8. ALPRAZOLAM. [Suspect]
     Active Substance: ALPRAZOLAM
     Indication: AGORAPHOBIA

REACTIONS (1)
  - Drug ineffective [Unknown]
